FAERS Safety Report 8317827-6 (Version None)
Quarter: 2012Q2

REPORT INFORMATION
  Report Type: 
  Country: None (occurrence: None)
  Receive Date: 20120427
  Receipt Date: 20120416
  Transmission Date: 20120825
  Serious: No
  Sender: FDA-Public Use
  Company Number: US-JNJFOC-20120407828

PATIENT
  Sex: Male

DRUGS (16)
  1. TAMSULOSIN HCL [Concomitant]
     Route: 048
  2. MELOXICAM [Concomitant]
     Route: 048
  3. GLYBURIDE [Concomitant]
     Route: 048
  4. LEVOTHYROXINE SODIUM [Concomitant]
     Route: 048
  5. OMEPRAZOLE [Concomitant]
     Route: 048
  6. AMLODIPINE BESYLATE [Concomitant]
     Route: 048
  7. ALBUTEROL [Concomitant]
     Indication: BRONCHITIS CHRONIC
  8. OXYCONTIN [Concomitant]
     Indication: PAIN
     Route: 048
  9. JANUVIA [Concomitant]
     Route: 048
  10. FENTANYL-100 [Suspect]
     Indication: BACK PAIN
     Route: 062
     Dates: start: 20120405
  11. DIAZEPAM [Concomitant]
     Indication: ANXIETY
     Route: 048
  12. LISINOPRIL [Concomitant]
     Route: 048
  13. METFORMIN HCL [Concomitant]
     Route: 048
  14. ZOLPIDEM [Concomitant]
     Indication: SLEEP DISORDER
     Route: 048
  15. GABAPENTIN [Concomitant]
     Indication: ARTHRALGIA
     Route: 048
  16. TRICOR [Concomitant]
     Route: 048

REACTIONS (5)
  - DRUG INEFFECTIVE [None]
  - INAPPROPRIATE SCHEDULE OF DRUG ADMINISTRATION [None]
  - PAIN [None]
  - PRODUCT QUALITY ISSUE [None]
  - WRONG TECHNIQUE IN DRUG USAGE PROCESS [None]
